FAERS Safety Report 8804610 (Version 1)
Quarter: 2012Q4

REPORT INFORMATION
  Report Type: 
  Country: BR (occurrence: BR)
  Receive Date: 20120924
  Receipt Date: 20120924
  Transmission Date: 20130627
  Serious: Yes (Hospitalization)
  Sender: FDA-Public Use
  Company Number: BR-ABBOTT-12P-020-0939769-00

PATIENT
  Age: 67 Year
  Sex: Male

DRUGS (4)
  1. ATACAND [Suspect]
     Indication: HYPERTENSION
     Route: 048
     Dates: start: 2007, end: 2007
  2. ATACAND [Suspect]
     Route: 048
     Dates: start: 2007
  3. ASA [Concomitant]
     Indication: PRODUCT USED FOR UNKNOWN INDICATION
     Route: 048
     Dates: start: 1992
  4. OMEGA 3 [Concomitant]
     Indication: PRODUCT USED FOR UNKNOWN INDICATION
     Route: 048

REACTIONS (3)
  - Myocardial ischaemia [Recovered/Resolved]
  - Glucose tolerance impaired [Not Recovered/Not Resolved]
  - Blood pressure decreased [Recovered/Resolved]
